FAERS Safety Report 7480477-8 (Version None)
Quarter: 2011Q2

REPORT INFORMATION
  Report Type: 
  Country: None (occurrence: None)
  Receive Date: 20110506
  Receipt Date: 20110428
  Transmission Date: 20111010
  Serious: Yes (Other)
  Sender: FDA-Public Use
  Company Number: 2011SP019018

PATIENT
  Age: 76 Year
  Sex: Male

DRUGS (1)
  1. DIPROSONE [Suspect]
     Indication: ANKYLOSING SPONDYLITIS
     Dosage: 1 ML; ONCE; IM
     Route: 030
     Dates: start: 20110111

REACTIONS (5)
  - HAEMATOCRIT DECREASED [None]
  - ERYTHEMA [None]
  - SWELLING FACE [None]
  - HAEMOGLOBIN DECREASED [None]
  - HEADACHE [None]
